FAERS Safety Report 21446683 (Version 1)
Quarter: 2022Q4

REPORT INFORMATION
  Report Type: Spontaneous
  Country: US (occurrence: US)
  Receive Date: 20221012
  Receipt Date: 20221012
  Transmission Date: 20230113
  Serious: No
  Sender: FDA-Public Use
  Company Number: US-PFIZER INC-PV202200076026

PATIENT
  Age: 32 Year
  Sex: Female

DRUGS (2)
  1. LORBRENA [Suspect]
     Active Substance: LORLATINIB
     Dosage: 25 MG
  2. LORBRENA [Suspect]
     Active Substance: LORLATINIB
     Dosage: 100 MG

REACTIONS (4)
  - Product dose omission issue [Unknown]
  - Malaise [Unknown]
  - Pain [Unknown]
  - Headache [Unknown]
